FAERS Safety Report 7555583-X (Version None)
Quarter: 2011Q2

REPORT INFORMATION
  Report Type: 
  Country: None (occurrence: None)
  Receive Date: 20110617
  Receipt Date: 20080103
  Transmission Date: 20111010
  Serious: Yes (Other)
  Sender: FDA-Public Use
  Company Number: PHHY2008CA00538

PATIENT
  Sex: Female

DRUGS (1)
  1. SANDOSTATIN LAR [Suspect]
     Indication: METASTASES TO RECTUM
     Dosage: 20 MG, QMO
     Route: 030
     Dates: start: 20071105

REACTIONS (6)
  - HYPOTENSION [None]
  - ASTHENIA [None]
  - PHLEBITIS [None]
  - METASTASES TO RECTUM [None]
  - DRUG INEFFECTIVE [None]
  - DIARRHOEA [None]
